FAERS Safety Report 8212158-7 (Version None)
Quarter: 2012Q1

REPORT INFORMATION
  Report Type: 
  Country: None (occurrence: None)
  Receive Date: 20120315
  Receipt Date: 20120313
  Transmission Date: 20120608
  Serious: Yes (Other)
  Sender: FDA-Public Use
  Company Number: PHHY2012NZ018637

PATIENT
  Sex: Male

DRUGS (2)
  1. CLOZARIL [Suspect]
     Indication: SCHIZOPHRENIA
     Dosage: UNK UKN, UNK
     Dates: start: 20110209
  2. CLOZARIL [Suspect]
     Dosage: 100 MG

REACTIONS (7)
  - MENTAL DISORDER [None]
  - NEUTROPHIL COUNT DECREASED [None]
  - WHITE BLOOD CELL COUNT DECREASED [None]
  - HAEMATOCRIT DECREASED [None]
  - BLOOD UREA DECREASED [None]
  - MONOCYTE COUNT DECREASED [None]
  - INFECTION [None]
